FAERS Safety Report 8170052-4 (Version None)
Quarter: 2012Q1

REPORT INFORMATION
  Report Type: 
  Country: None (occurrence: None)
  Receive Date: 20120104
  Receipt Date: 20111122
  Transmission Date: 20120608
  Serious: No
  Sender: FDA-Public Use
  Company Number: 2011HGS-002855

PATIENT
  Age: 59 Year
  Sex: Female
  Weight: 103.8737 kg

DRUGS (7)
  1. ATACAND [Concomitant]
  2. SULAR (NISOLDIPINE) (NISOLDIPINE) [Concomitant]
  3. BENLYSTA [Suspect]
     Indication: SYSTEMIC LUPUS ERYTHEMATOSUS
     Dosage: 1 IN 28 D, INTRAVENOUS DRIP
     Route: 041
     Dates: start: 20111013, end: 20111013
  4. CELEBREX [Concomitant]
  5. LISINOPRIL [Concomitant]
  6. IRON SUPPLEMENT (IRON) (IRON) [Concomitant]
  7. NEXIUM [Concomitant]

REACTIONS (5)
  - VOMITING [None]
  - BLOOD CHOLESTEROL DECREASED [None]
  - DIARRHOEA [None]
  - DYSPNOEA [None]
  - BLOOD SODIUM INCREASED [None]
